FAERS Safety Report 12542924 (Version 2)
Quarter: 2016Q3

REPORT INFORMATION
  Report Type: Spontaneous
  Country: US (occurrence: US)
  Receive Date: 20160710
  Receipt Date: 20160830
  Transmission Date: 20161109
  Serious: Yes (Other)
  Sender: FDA-Public Use
  Company Number: US-TEVA-675014USA

PATIENT
  Sex: Female

DRUGS (7)
  1. METHOTREXATE. [Concomitant]
     Active Substance: METHOTREXATE
  2. XELJANZ [Suspect]
     Active Substance: TOFACITINIB CITRATE
     Indication: RHEUMATOID ARTHRITIS
     Dosage: 10 MILLIGRAM DAILY;
     Route: 048
     Dates: start: 201503
  3. LEUCOVORIN CALCIUM. [Concomitant]
     Active Substance: LEUCOVORIN CALCIUM
  4. WARFARIN [Suspect]
     Active Substance: WARFARIN
     Route: 065
  5. DICLOFENAC [Concomitant]
     Active Substance: DICLOFENAC
  6. SUTENT [Suspect]
     Active Substance: SUNITINIB MALATE
     Route: 065
  7. CELEBREX [Concomitant]
     Active Substance: CELECOXIB

REACTIONS (10)
  - Retching [Unknown]
  - Vomiting [Unknown]
  - Lactose intolerance [Unknown]
  - Musculoskeletal pain [Unknown]
  - Rheumatoid arthritis [Unknown]
  - Joint stiffness [Unknown]
  - Nausea [Unknown]
  - Drug interaction [Unknown]
  - Headache [Unknown]
  - Sinusitis [Unknown]
